FAERS Safety Report 7569517-5 (Version None)
Quarter: 2011Q2

REPORT INFORMATION
  Report Type: 
  Country: None (occurrence: None)
  Receive Date: 20110624
  Receipt Date: 20110614
  Transmission Date: 20111010
  Serious: No
  Sender: FDA-Public Use
  Company Number: US-BIOGENIDEC-2011BI022059

PATIENT
  Age: 57 Year
  Sex: Female

DRUGS (2)
  1. AVONEX [Suspect]
     Indication: MULTIPLE SCLEROSIS
     Route: 030
     Dates: start: 20091115
  2. AVONEX [Suspect]
     Route: 030
     Dates: start: 20030403, end: 20030101

REACTIONS (5)
  - JOINT RANGE OF MOTION DECREASED [None]
  - HEADACHE [None]
  - NEURALGIA [None]
  - ASTHENIA [None]
  - PAIN [None]
